FAERS Safety Report 16618653 (Version 2)
Quarter: 2020Q2

REPORT INFORMATION
  Report Type: Spontaneous
  Country: US (occurrence: US)
  Receive Date: 20190723
  Receipt Date: 20200512
  Transmission Date: 20200713
  Serious: No
  Sender: FDA-Public Use
  Company Number: US-TEVA-2019-US-1080998

PATIENT
  Age: 76 Year
  Sex: Female

DRUGS (2)
  1. FAMOTIDINE TEVA [Suspect]
     Active Substance: FAMOTIDINE
     Route: 065
     Dates: start: 20180507, end: 20180515
  2. FAMOTIDINE TEVA [Suspect]
     Active Substance: FAMOTIDINE
     Indication: GASTROOESOPHAGEAL REFLUX DISEASE
     Route: 065
     Dates: start: 201804

REACTIONS (8)
  - Hypoacusis [Unknown]
  - Product contamination [Unknown]
  - Tinnitus [Not Recovered/Not Resolved]
  - Head discomfort [Not Recovered/Not Resolved]
  - Dizziness [Unknown]
  - Headache [Not Recovered/Not Resolved]
  - Ear pain [Not Recovered/Not Resolved]
  - Ear infection [Not Recovered/Not Resolved]

NARRATIVE: CASE EVENT DATE: 201804
